FAERS Safety Report 9928743 (Version 1)
Quarter: 2014Q1

REPORT INFORMATION
  Report Type: Spontaneous
  Country: IT (occurrence: None)
  Receive Date: 20140225
  Receipt Date: 20140225
  Transmission Date: 20141002
  Serious: Yes (Other)
  Sender: FDA-Public Use
  Company Number: 2190382

PATIENT
  Age: 45 Year
  Sex: Female

DRUGS (4)
  1. EPIRUBICIN HYDROCHLORIDE [Suspect]
     Indication: REGIONAL CHEMOTHERAPY
     Dosage: 1 UNIT DOSE, TOTAL
     Route: 042
     Dates: start: 20140116, end: 20140116
  2. FLUOROURACIL [Suspect]
     Indication: REGIONAL CHEMOTHERAPY
     Dosage: 1 UNIT DOSE, TOTAL
     Route: 042
     Dates: start: 20140116, end: 20140116
  3. (CYCLOPHOSPHAMIDE) [Suspect]
     Indication: REGIONAL CHEMOTHERAPY
     Dosage: 1 UNIT DOSE, TOTAL
     Route: 042
     Dates: start: 20140116, end: 20140116
  4. (EUTIROX) [Concomitant]

REACTIONS (1)
  - Supraventricular extrasystoles [None]
